FAERS Safety Report 20725638 (Version 2)
Quarter: 2022Q2

REPORT INFORMATION
  Report Type: Spontaneous
  Country: US (occurrence: US)
  Receive Date: 20220419
  Receipt Date: 20220508
  Transmission Date: 20220721
  Serious: Yes (Other)
  Sender: FDA-Public Use
  Company Number: US-BRISTOL-MYERS SQUIBB COMPANY-2022-021670

PATIENT
  Age: 83 Year
  Sex: Female

DRUGS (4)
  1. POMALYST [Suspect]
     Active Substance: POMALIDOMIDE
     Indication: Plasma cell myeloma
     Dosage: TAKE 1 CAPSULE BY MOUTH ONCE DAILY ON DAYS 1-21 OF EACH 28 DAY CYCLES
     Route: 048
     Dates: start: 20210513
  2. POMALYST [Suspect]
     Active Substance: POMALIDOMIDE
     Route: 065
  3. CALCIUM CARB SUS [Concomitant]
     Indication: Product used for unknown indication
     Dosage: 1250/5ML
     Route: 065
  4. VTAMIN D3 [Concomitant]
     Indication: Product used for unknown indication
     Dosage: 50000 UNT
     Route: 065

REACTIONS (2)
  - Drug ineffective [Unknown]
  - Gallbladder disorder [Unknown]
